FAERS Safety Report 6188447-7 (Version None)
Quarter: 2009Q2

REPORT INFORMATION
  Report Type: 
  Country: None (occurrence: None)
  Receive Date: 20090513
  Receipt Date: 20090331
  Transmission Date: 20091009
  Serious: No
  Sender: FDA-Public Use
  Company Number: US-BAYER-200911028BCC

PATIENT
  Age: 56 Year
  Sex: Female
  Weight: 60 kg

DRUGS (3)
  1. ALEVE [Suspect]
     Indication: ARTHRALGIA
     Dosage: AS USED: 220 MG  UNIT DOSE: 220 MG
     Route: 048
     Dates: start: 20090308, end: 20090312
  2. ALEVE [Suspect]
     Dosage: AS USED: 220 MG  UNIT DOSE: 220 MG
     Route: 048
     Dates: start: 20090318, end: 20090321
  3. LEVOTHYROXINE SODIUM [Concomitant]
     Indication: DRUG USE FOR UNKNOWN INDICATION
     Route: 065

REACTIONS (1)
  - INSOMNIA [None]
